FAERS Safety Report 7431694-4 (Version None)
Quarter: 2011Q2

REPORT INFORMATION
  Report Type: 
  Country: None (occurrence: None)
  Receive Date: 20110422
  Receipt Date: 20110414
  Transmission Date: 20111010
  Serious: Yes (Hospitalization, Other)
  Sender: FDA-Public Use
  Company Number: US-BIOGENIDEC-2011BI008312

PATIENT
  Age: 40 Year
  Sex: Female

DRUGS (2)
  1. TYSABRI [Suspect]
     Indication: MULTIPLE SCLEROSIS
     Route: 042
     Dates: start: 20080718, end: 20090921
  2. TYSABRI [Suspect]
     Route: 042
     Dates: start: 20101017, end: 20101116

REACTIONS (5)
  - HYPOAESTHESIA [None]
  - PULMONARY THROMBOSIS [None]
  - PAIN [None]
  - PARAESTHESIA [None]
  - CYSTITIS [None]
